FAERS Safety Report 9472541 (Version 1)
Quarter: 2013Q3

REPORT INFORMATION
  Report Type: Spontaneous
  Country: US (occurrence: None)
  Receive Date: 20130821
  Receipt Date: 20130821
  Transmission Date: 20140515
  Serious: No
  Sender: FDA-Public Use
  Company Number: None

PATIENT
  Age: 28 Year
  Sex: Male

DRUGS (3)
  1. LAMICTAL [Suspect]
     Indication: EPILEPSY
     Dosage: UNKNOWN
  2. GABITRIL [Suspect]
     Indication: EPILEPSY
     Dosage: UNKNOWN
  3. BENADRYL [Concomitant]

REACTIONS (4)
  - Drug ineffective [None]
  - Rash [None]
  - Road traffic accident [None]
  - Convulsion [None]
